FAERS Safety Report 4321187-5 (Version None)
Quarter: 2004Q1

REPORT INFORMATION
  Report Type: 
  Country: None (occurrence: None)
  Receive Date: 20040322
  Receipt Date: 20040316
  Transmission Date: 20041129
  Serious: Yes (Death, Other)
  Sender: FDA-Public Use
  Company Number: WAES 0403GBR00189

PATIENT
  Age: 61 Year
  Sex: Male
  Weight: 56 kg

DRUGS (2)
  1. IBUPROFEN [Concomitant]
     Indication: LOCALISED OSTEOARTHRITIS
     Route: 048
     Dates: start: 20030327, end: 20040212
  2. VIOXX [Suspect]
     Indication: LOCALISED OSTEOARTHRITIS
     Route: 048
     Dates: start: 20040212, end: 20040220

REACTIONS (2)
  - CORONARY ARTERY DISEASE [None]
  - MYOCARDIAL ISCHAEMIA [None]
